FAERS Safety Report 4349763-4 (Version None)
Quarter: 2004Q2

REPORT INFORMATION
  Report Type: 
  Country: None (occurrence: None)
  Receive Date: 20040428
  Receipt Date: 20040413
  Transmission Date: 20050107
  Serious: Yes (Other)
  Sender: FDA-Public Use
  Company Number: CHPA2003US02265

PATIENT
  Age: 47 Year
  Sex: Male

DRUGS (19)
  1. EX-LAX UNKNOWN (NCH) (UNKNOWN) UNKNOWN [Suspect]
     Dosage: ORAL
     Route: 048
     Dates: start: 19730101
  2. FEEN-A-MINT (PHENOLPHTHALEIN) [Suspect]
     Dosage: ORAL
     Route: 048
     Dates: start: 19730101
  3. CORRECTOL ^SCHERING-PLOUGH^ (BISACODYL) UNKNOWN [Suspect]
     Dosage: ORAL
     Route: 048
     Dates: start: 19730101
  4. MAXZIDE [Concomitant]
  5. DAYPRO [Concomitant]
  6. ZOSTRIX (CAPSAICIN) [Concomitant]
  7. MULTI-VITAMINS [Concomitant]
  8. EXTRA STRENGTH TYLENOL [Concomitant]
  9. PEPCID [Concomitant]
  10. ZYRTEC [Concomitant]
  11. VANCENASE AQ (BECLOMETASONE DIPROPIONATE) [Concomitant]
  12. ANUSOL HC [Concomitant]
  13. LOTENSIN [Concomitant]
  14. LAMISIL [Concomitant]
  15. GLUCOTROL XL [Concomitant]
  16. ALTACE [Concomitant]
  17. LASIX [Concomitant]
  18. ASPIRIN [Concomitant]
  19. NITROGLYCERIN ^A.L.^ [Concomitant]

REACTIONS (40)
  - ALCOHOLISM [None]
  - ARTHRALGIA [None]
  - ASBESTOSIS [None]
  - BENIGN PROSTATIC HYPERPLASIA [None]
  - BRONCHITIS CHRONIC [None]
  - BUNION [None]
  - CHEST PAIN [None]
  - CHEST WALL PAIN [None]
  - CHOLELITHIASIS [None]
  - CONSTIPATION [None]
  - DIABETES MELLITUS NON-INSULIN-DEPENDENT [None]
  - DIABETIC RETINOPATHY [None]
  - DIARRHOEA [None]
  - DIVERTICULUM INTESTINAL [None]
  - DRUG DEPENDENCE [None]
  - EAR PAIN [None]
  - ECONOMIC PROBLEM [None]
  - EMOTIONAL DISORDER [None]
  - EUSTACHIAN TUBE DYSFUNCTION [None]
  - EYE PAIN [None]
  - GLAUCOMA [None]
  - HAEMATOCHEZIA [None]
  - HAEMOPTYSIS [None]
  - HAEMORRHOIDS [None]
  - HYPERCHOLESTEROLAEMIA [None]
  - HYPERLIPIDAEMIA [None]
  - HYPERTENSION [None]
  - INJURY [None]
  - IRON DEFICIENCY ANAEMIA [None]
  - MYCOSIS FUNGOIDES [None]
  - OBESITY [None]
  - OSTEOARTHRITIS [None]
  - PAIN IN EXTREMITY [None]
  - RECTAL HAEMORRHAGE [None]
  - RHINITIS ALLERGIC [None]
  - SNEEZING [None]
  - TINNITUS [None]
  - TREATMENT NONCOMPLIANCE [None]
  - UMBILICAL HERNIA [None]
  - VISION BLURRED [None]
